FAERS Safety Report 23524870 (Version 1)
Quarter: 2024Q1

REPORT INFORMATION
  Report Type: Spontaneous
  Country: KW (occurrence: KW)
  Receive Date: 20240215
  Receipt Date: 20240215
  Transmission Date: 20240410
  Serious: Yes (Death, Life-Threatening, Hospitalization)
  Sender: FDA-Public Use
  Company Number: KW-STRIDES ARCOLAB LIMITED-2024SP001645

PATIENT
  Age: 56 Year
  Sex: Female

DRUGS (1)
  1. MYCOPHENOLATE MOFETIL [Suspect]
     Active Substance: MYCOPHENOLATE MOFETIL
     Indication: Sarcoidosis
     Dosage: UNK
     Route: 065

REACTIONS (8)
  - Death [Fatal]
  - Acute respiratory distress syndrome [Unknown]
  - Renal failure [Unknown]
  - Sepsis [Unknown]
  - Bacterial infection [Unknown]
  - Fungal infection [Unknown]
  - COVID-19 [Unknown]
  - Off label use [Unknown]
